FAERS Safety Report 4948854-4 (Version None)
Quarter: 2006Q1

REPORT INFORMATION
  Report Type: 
  Country: None (occurrence: None)
  Receive Date: 20060315
  Receipt Date: 20060302
  Transmission Date: 20060701
  Serious: Yes (Death, Hospitalization, Other)
  Sender: FDA-Public Use
  Company Number: 2005156878

PATIENT
  Sex: Female

DRUGS (5)
  1. NEURONTIN [Suspect]
     Indication: BIPOLAR DISORDER
     Dosage: 300 MG
     Dates: start: 20031001
  2. HYDROXYZINE HCL [Suspect]
     Indication: ANXIETY
     Dosage: 25 MG
     Dates: start: 20031001
  3. REMERON [Suspect]
     Indication: DEPRESSION
     Dosage: 15 MG
  4. ULTRAM [Suspect]
     Indication: PAIN
     Dosage: 50 MG
  5. ALL OTHER THERAPEUTIC PRODUCTS (ALL OTHER THERAPEUTIC PRODUCTS) [Suspect]
     Indication: ILL-DEFINED DISORDER

REACTIONS (7)
  - COMPLETED SUICIDE [None]
  - DRUG INEFFECTIVE [None]
  - GUN SHOT WOUND [None]
  - INTENTIONAL SELF-INJURY [None]
  - MULTIPLE DRUG OVERDOSE INTENTIONAL [None]
  - SELF ESTEEM DECREASED [None]
  - SUICIDAL IDEATION [None]
